FAERS Safety Report 6348787-5 (Version None)
Quarter: 2009Q3

REPORT INFORMATION
  Report Type: 
  Country: None (occurrence: None)
  Receive Date: 20090911
  Receipt Date: 20090909
  Transmission Date: 20100115
  Serious: Yes (Hospitalization)
  Sender: FDA-Public Use
  Company Number: US-BRISTOL-MYERS SQUIBB COMPANY-14343610

PATIENT
  Age: 56 Year
  Sex: Female
  Weight: 50 kg

DRUGS (12)
  1. TAXOL [Suspect]
     Indication: BREAST CANCER
     Dosage: THERAPY START DATE: 24-APR-2008; FREQUENCY WEEKLY 3 OF 4 WEEKS DISCONTINUED ON 05AUG09
     Route: 042
     Dates: start: 20080424, end: 20080805
  2. SUTENT [Suspect]
     Indication: BREAST CANCER
     Route: 048
     Dates: start: 20080424, end: 20080818
  3. PEPCID [Concomitant]
     Route: 048
     Dates: start: 20080424
  4. ZOFRAN [Concomitant]
     Route: 048
     Dates: start: 20080424
  5. DIPHENHYDRAMINE HCL [Concomitant]
     Route: 042
     Dates: start: 20080424
  6. NEUPOGEN [Concomitant]
     Route: 058
     Dates: start: 20080701
  7. DEXAMETHASONE [Concomitant]
     Route: 042
     Dates: start: 20080424
  8. OXYCONTIN [Concomitant]
     Route: 048
     Dates: start: 20080201
  9. OXYCODONE [Concomitant]
     Route: 048
     Dates: start: 20080201
  10. ZOLEDRONIC ACID [Concomitant]
     Route: 042
     Dates: start: 20080225
  11. LEXAPRO [Concomitant]
     Route: 048
     Dates: start: 20070101
  12. SYNTHROID [Concomitant]
     Route: 048
     Dates: start: 20020101

REACTIONS (1)
  - COLITIS ULCERATIVE [None]
